FAERS Safety Report 8294446-1 (Version None)
Quarter: 2012Q2

REPORT INFORMATION
  Report Type: 
  Country: None (occurrence: None)
  Receive Date: 20120418
  Receipt Date: 20120412
  Transmission Date: 20120825
  Serious: Yes (Other)
  Sender: FDA-Public Use
  Company Number: PHEH2012US007947

PATIENT
  Sex: Female
  Weight: 76.644 kg

DRUGS (4)
  1. CLOZAPINE [Interacting]
  2. LAMISIL [Suspect]
     Indication: FUNGAL INFECTION
     Dosage: 250 MG
  3. RIFAMYCIN [Interacting]
     Indication: SKIN DISORDER
     Dosage: 333MG QD
  4. EFFEXOR XR [Interacting]
     Indication: BIPOLAR DISORDER
     Dosage: 75 MG TID
     Route: 048

REACTIONS (6)
  - DIPLOPIA [None]
  - EYE MOVEMENT DISORDER [None]
  - VISUAL IMPAIRMENT [None]
  - OCULAR DISCOMFORT [None]
  - DRUG INTERACTION [None]
  - INCORRECT DOSE ADMINISTERED [None]
